FAERS Safety Report 13004297 (Version 1)
Quarter: 2016Q4

REPORT INFORMATION
  Report Type: Spontaneous
  Country: US (occurrence: US)
  Receive Date: 20161206
  Receipt Date: 20161206
  Transmission Date: 20170207
  Serious: Yes (Other)
  Sender: FDA-Public Use
  Company Number: US-MALLINCKRODT-T201602006

PATIENT
  Age: 58 Year
  Sex: Female
  Weight: 68 kg

DRUGS (11)
  1. CHLORDIAZEPOXIDE. [Concomitant]
     Active Substance: CHLORDIAZEPOXIDE
  2. METHYLPHENIDATE. [Concomitant]
     Active Substance: METHYLPHENIDATE
  3. ROPINIROLE. [Concomitant]
     Active Substance: ROPINIROLE
  4. ESTRADIOL. [Concomitant]
     Active Substance: ESTRADIOL
  5. CODEINE SULFATE. [Concomitant]
     Active Substance: CODEINE SULFATE
  6. PROGESTERONE. [Concomitant]
     Active Substance: PROGESTERONE
  7. OXYMORPHONE HYDROCHLORIDE. [Suspect]
     Active Substance: OXYMORPHONE HYDROCHLORIDE
     Indication: PAIN
     Dosage: 1 (ONE) TABLET BID PRN
     Route: 048
     Dates: start: 201511
  8. FENTANYL TRANSDERMAL SYSTEM [Suspect]
     Active Substance: FENTANYL
     Indication: PAIN
     Dosage: 75MCG Q 48 HOURS
     Route: 062
     Dates: start: 201506
  9. BELSOMRA [Concomitant]
     Active Substance: SUVOREXANT
  10. TIZANIDINE. [Concomitant]
     Active Substance: TIZANIDINE
  11. CLIDINIUM [Concomitant]
     Active Substance: CLIDINIUM

REACTIONS (1)
  - Seizure [Recovered/Resolved]

NARRATIVE: CASE EVENT DATE: 20160408
